FAERS Safety Report 17687111 (Version 2)
Quarter: 2020Q2

REPORT INFORMATION
  Report Type: Report from Study
  Country: US (occurrence: US)
  Receive Date: 20200421
  Receipt Date: 20200604
  Transmission Date: 20200714
  Serious: Yes (Other)
  Sender: FDA-Public Use
  Company Number: US-ASTELLAS-2020US014027

PATIENT
  Sex: Male

DRUGS (1)
  1. ENZALUTAMIDE [Suspect]
     Active Substance: ENZALUTAMIDE
     Indication: PROSTATE CANCER
     Route: 048
     Dates: start: 20200324, end: 20200521

REACTIONS (7)
  - Neuropathy peripheral [Unknown]
  - Back pain [Unknown]
  - Hypoaesthesia [Unknown]
  - Hot flush [Unknown]
  - Dry mouth [Unknown]
  - Fatigue [Unknown]
  - Prostatic specific antigen increased [Unknown]
